FAERS Safety Report 7117913-2 (Version None)
Quarter: 2010Q4

REPORT INFORMATION
  Report Type: 
  Country: None (occurrence: None)
  Receive Date: 20101118
  Receipt Date: 20101118
  Transmission Date: 20110411
  Serious: Yes (Other)
  Sender: FDA-Public Use
  Company Number: None

PATIENT
  Sex: Female
  Weight: 34.0198 kg

DRUGS (2)
  1. STRATTERA [Suspect]
     Indication: ABNORMAL BEHAVIOUR
     Dosage: 1 HS PO
     Route: 048
     Dates: start: 20101020, end: 20101022
  2. STRATTERA [Suspect]
     Indication: CONDUCT DISORDER
     Dosage: 1 HS PO
     Route: 048
     Dates: start: 20101020, end: 20101022

REACTIONS (3)
  - FOAMING AT MOUTH [None]
  - SWOLLEN TONGUE [None]
  - TONGUE DISCOLOURATION [None]
